FAERS Safety Report 16785211 (Version 1)
Quarter: 2019Q3

REPORT INFORMATION
  Report Type: Spontaneous
  Country: US (occurrence: US)
  Receive Date: 20190909
  Receipt Date: 20190909
  Transmission Date: 20191005
  Serious: No
  Sender: FDA-Public Use
  Company Number: US-MYLANLABS-2019M1080427

PATIENT
  Sex: Male
  Weight: 59.4 kg

DRUGS (1)
  1. FENTANYL. [Suspect]
     Active Substance: FENTANYL
     Indication: SPINAL PAIN
     Dosage: 100 MICROGRAM, EVERY 3 DAYS
     Route: 062

REACTIONS (1)
  - Somnolence [Recovered/Resolved]
